FAERS Safety Report 9510262 (Version 1)
Quarter: 2013Q3

REPORT INFORMATION
  Report Type: Spontaneous
  Country: US (occurrence: US)
  Receive Date: 20130909
  Receipt Date: 20130909
  Transmission Date: 20140515
  Serious: No
  Sender: FDA-Public Use
  Company Number: US-BRISTOL-MYERS SQUIBB COMPANY-17483488

PATIENT
  Age: 32 Year
  Sex: Female

DRUGS (5)
  1. ABILIFY [Suspect]
     Indication: MAJOR DEPRESSION
     Dosage: TITRATED UP FROM 5MG TO 10MG?REDUCED TO 5MG
  2. PRISTIQ [Concomitant]
  3. XANAX [Concomitant]
  4. ENALAPRIL [Concomitant]
  5. FLEXERIL [Concomitant]

REACTIONS (1)
  - Torticollis [Unknown]
